FAERS Safety Report 8797294 (Version 1)
Quarter: 2012Q4

REPORT INFORMATION
  Report Type: Report from Study
  Country: DE (occurrence: KR)
  Receive Date: 20120919
  Receipt Date: 20120919
  Transmission Date: 20130627
  Serious: Yes (Other)
  Sender: FDA-Public Use
  Company Number: DE-ACTELION-A-US2012-71632

PATIENT
  Sex: Female

DRUGS (2)
  1. VENTAVIS [Suspect]
     Indication: PRODUCT USED FOR UNKNOWN INDICATION
     Dosage: UNK
     Route: 055
     Dates: start: 200509
  2. SILDENAFIL [Suspect]

REACTIONS (1)
  - Vaginal haemorrhage [Unknown]
